FAERS Safety Report 6943292-7 (Version None)
Quarter: 2010Q3

REPORT INFORMATION
  Report Type: 
  Country: None (occurrence: None)
  Receive Date: 20100826
  Receipt Date: 20100817
  Transmission Date: 20110219
  Serious: Yes (Other)
  Sender: FDA-Public Use
  Company Number: US-ASTRAZENECA-2010SE38613

PATIENT
  Sex: Male

DRUGS (2)
  1. ZOLADEX [Suspect]
     Route: 058
  2. COUMADIN [Concomitant]

REACTIONS (1)
  - INJECTION SITE HAEMATOMA [None]
